FAERS Safety Report 9093271 (Version 2)
Quarter: 2013Q1

REPORT INFORMATION
  Report Type: Spontaneous
  Country: US (occurrence: US)
  Receive Date: 20130201
  Receipt Date: 20130305
  Transmission Date: 20140127
  Serious: Yes (Hospitalization)
  Sender: FDA-Public Use
  Company Number: US-ASTRAZENECA-2013SE05154

PATIENT
  Age: 29 Year
  Sex: Male
  Weight: 158.8 kg

DRUGS (12)
  1. CAPRELSA [Suspect]
     Indication: THYROID CANCER
     Route: 048
     Dates: start: 20130114, end: 20130120
  2. CAPRELSA [Suspect]
     Indication: THYROID CANCER
     Route: 048
  3. CAPRELSA [Suspect]
     Indication: THYROID CANCER
     Route: 048
  4. ATENOLOL [Suspect]
     Route: 065
  5. HCTZ [Suspect]
     Route: 065
  6. ALBUTEROL [Concomitant]
  7. AMLODIPINE [Concomitant]
  8. PERCOCET [Concomitant]
  9. BUSPIRONE [Concomitant]
  10. CYCLOBENZAPINE [Concomitant]
  11. LEXAPRO [Concomitant]
  12. LOSARTAN [Concomitant]

REACTIONS (2)
  - Hypertensive crisis [Recovering/Resolving]
  - Acne [Unknown]
